FAERS Safety Report 6147217-6 (Version None)
Quarter: 2009Q2

REPORT INFORMATION
  Report Type: 
  Country: None (occurrence: None)
  Receive Date: 20090403
  Receipt Date: 20090324
  Transmission Date: 20091009
  Serious: Yes (Death)
  Sender: FDA-Public Use
  Company Number: 1000005308

PATIENT
  Age: 42 Year
  Sex: Male

DRUGS (6)
  1. LEXAPRO [Suspect]
  2. ZYPREXA [Suspect]
     Dosage: 20 MG (20 MG, 1 IN 1 D)
  3. LUNESTA [Suspect]
  4. SEROQUEL [Suspect]
  5. VISTARIL [Suspect]
  6. DEPAKOTE [Suspect]

REACTIONS (8)
  - ACCIDENTAL DEATH [None]
  - ALCOHOL USE [None]
  - ANTIPSYCHOTIC DRUG LEVEL ABOVE THERAPEUTIC [None]
  - ARTERIOSCLEROSIS [None]
  - DRUG TOXICITY [None]
  - HEPATIC STEATOSIS [None]
  - PULMONARY OEDEMA [None]
  - SNORING [None]
